FAERS Safety Report 12845433 (Version 1)
Quarter: 2016Q4

REPORT INFORMATION
  Report Type: Spontaneous
  Country: US (occurrence: US)
  Receive Date: 20161013
  Receipt Date: 20161013
  Transmission Date: 20170207
  Serious: No
  Sender: FDA-Public Use
  Company Number: US-JAZZ-2016-US-013593

PATIENT
  Age: 19 Year
  Sex: Male

DRUGS (16)
  1. SELENIUM SULFIDE. [Concomitant]
     Active Substance: SELENIUM SULFIDE
  2. ABILIFY [Concomitant]
     Active Substance: ARIPIPRAZOLE
  3. SENNA LAXATIVE [Concomitant]
     Active Substance: SENNOSIDES
  4. CLONAZEPAM. [Concomitant]
     Active Substance: CLONAZEPAM
  5. VITAMIN D [Concomitant]
     Active Substance: CHOLECALCIFEROL
  6. HUMATROPE [Concomitant]
     Active Substance: SOMATROPIN
  7. RISPERDAL [Concomitant]
     Active Substance: RISPERIDONE
  8. XYREM [Suspect]
     Active Substance: SODIUM OXYBATE
     Indication: NARCOLEPSY
     Dosage: 1.5 G, BID
     Route: 048
     Dates: start: 201312, end: 201401
  9. XYREM [Suspect]
     Active Substance: SODIUM OXYBATE
     Indication: CATAPLEXY
     Dosage: DOSE ADJUSTMENTS
     Dates: start: 201401, end: 201511
  10. XYREM [Suspect]
     Active Substance: SODIUM OXYBATE
     Dosage: 2.5 G, QD
     Route: 048
     Dates: start: 201511
  11. TRILEPTAL [Concomitant]
     Active Substance: OXCARBAZEPINE
  12. VITAMIN C [Concomitant]
     Active Substance: ASCORBIC ACID
  13. ZYRTEC [Concomitant]
     Active Substance: CETIRIZINE HYDROCHLORIDE
  14. MULTIVITAMINS [Concomitant]
     Active Substance: VITAMINS
  15. COLACE [Concomitant]
     Active Substance: DOCUSATE SODIUM
  16. ATIVAN [Concomitant]
     Active Substance: LORAZEPAM

REACTIONS (4)
  - Aggression [Not Recovered/Not Resolved]
  - Weight increased [Unknown]
  - Asthenia [Unknown]
  - Somnolence [Not Recovered/Not Resolved]

NARRATIVE: CASE EVENT DATE: 201603
